FAERS Safety Report 10800065 (Version 1)
Quarter: 2015Q1

REPORT INFORMATION
  Report Type: Report from Study
  Country: US (occurrence: US)
  Receive Date: 20150216
  Receipt Date: 20150216
  Transmission Date: 20150721
  Serious: No
  Sender: FDA-Public Use
  Company Number: US-ABBVIE-14K-163-1244003-00

PATIENT
  Age: 19 Year
  Sex: Male

DRUGS (5)
  1. FLONASE [Concomitant]
     Active Substance: FLUTICASONE PROPIONATE
     Indication: SEASONAL ALLERGY
     Dosage: ONE SPRAY EACH NARE
     Route: 045
  2. HUMIRA [Suspect]
     Active Substance: ADALIMUMAB
  3. ALBUTEROL. [Concomitant]
     Active Substance: ALBUTEROL
     Indication: ASTHMA
     Route: 055
  4. HUMIRA [Suspect]
     Active Substance: ADALIMUMAB
     Dosage: DAY 15
     Dates: start: 20140321, end: 20140321
  5. HUMIRA [Suspect]
     Active Substance: ADALIMUMAB
     Indication: CROHN^S DISEASE
     Dosage: DAY ONE
     Dates: start: 20140306, end: 20140306

REACTIONS (2)
  - Drug dose omission [Unknown]
  - Injection site bruising [Not Recovered/Not Resolved]

NARRATIVE: CASE EVENT DATE: 20140306
